FAERS Safety Report 5668684-8 (Version None)
Quarter: 2008Q1

REPORT INFORMATION
  Report Type: 
  Country: None (occurrence: None)
  Receive Date: 20080312
  Receipt Date: 20080226
  Transmission Date: 20080703
  Serious: Yes (Hospitalization)
  Sender: FDA-Public Use
  Company Number: TW-JNJFOC-20080205814

PATIENT
  Age: 72 Year
  Sex: Male

DRUGS (8)
  1. DECITABINE          (DECITABINE) LYOPHILIZED POWDER [Suspect]
     Indication: ACUTE MYELOID LEUKAEMIA
     Dosage: 20 MG/M2, 1 IN 1 DAY, INTRAVENOUS
     Route: 042
     Dates: start: 20080130, end: 20080203
  2. FELODIPINE        (FELODIPINE) TABLET [Concomitant]
  3. METFORMIN           (METFORMIN) TABLET [Concomitant]
  4. GLIPIZIDE         (GLIPIZIDE) TABLET [Concomitant]
  5. MAGNESIUM OXIDE         (MAGNESIUM OXIDE) TABLET [Concomitant]
  6. SILYMARIN        (SILYMARIN) TABLET [Concomitant]
  7. SENNOSIDE A+B CALCIUM           (SENNOSIDE A+B CALCIUM) TABLET [Concomitant]
  8. ULTRACET       (OPIOIDS) UNSPECIFIED [Concomitant]

REACTIONS (7)
  - ECTHYMA [None]
  - GANGRENE [None]
  - HYPERGLYCAEMIA [None]
  - PLEURAL EFFUSION [None]
  - PNEUMONITIS [None]
  - PSEUDOMONAS INFECTION [None]
  - PULMONARY HAEMORRHAGE [None]
